FAERS Safety Report 13012494 (Version 4)
Quarter: 2017Q1

REPORT INFORMATION
  Report Type: Report from Study
  Country: BR (occurrence: BR)
  Receive Date: 20161209
  Receipt Date: 20170111
  Transmission Date: 20170428
  Serious: Yes (Hospitalization)
  Sender: FDA-Public Use
  Company Number: PHHY2016BR167940

PATIENT
  Sex: Female
  Weight: 70 kg

DRUGS (5)
  1. FORASEQ [Suspect]
     Active Substance: BUDESONIDE\FORMOTEROL FUMARATE
     Indication: ASTHMA
     Dosage: 2 DF (BUDESONIDE 400 UG AND FORMOTEROL FUMARATE 12 UG), QD (IN THE MORNING AND AT NIGHT)
     Route: 055
  2. FORASEQ [Suspect]
     Active Substance: BUDESONIDE\FORMOTEROL FUMARATE
     Indication: CHRONIC OBSTRUCTIVE PULMONARY DISEASE
     Dosage: 1 DF (BUDESONIDE 400 UG AND FORMOTEROL FUMARATE 12 UG), QD (MORE THAN 10 YEARS)
     Route: 055
  3. FORASEQ [Suspect]
     Active Substance: BUDESONIDE\FORMOTEROL FUMARATE
     Indication: EMPHYSEMA
  4. LANTUS [Concomitant]
     Active Substance: INSULIN GLARGINE
     Indication: HYPERGLYCAEMIA
     Route: 065
  5. GALVUS [Suspect]
     Active Substance: VILDAGLIPTIN
     Indication: PRODUCT USED FOR UNKNOWN INDICATION
     Dosage: UNK
     Route: 065

REACTIONS (9)
  - Product physical issue [Unknown]
  - Incorrect route of drug administration [Unknown]
  - Loss of consciousness [Unknown]
  - Pneumonia [Recovered/Resolved]
  - Constipation [Unknown]
  - Asthmatic crisis [Unknown]
  - Gait disturbance [Unknown]
  - Bronchitis [Unknown]
  - Cerebral ischaemia [Unknown]
